FAERS Safety Report 9232791 (Version 1)
Quarter: 2013Q2

REPORT INFORMATION
  Report Type: Report from Study
  Country: CA (occurrence: CA)
  Receive Date: 20130416
  Receipt Date: 20130416
  Transmission Date: 20140414
  Serious: Yes (Other)
  Sender: FDA-Public Use
  Company Number: CA-JNJFOC-20130401915

PATIENT
  Age: 40 Year
  Sex: Female
  Weight: 78 kg

DRUGS (5)
  1. REMICADE [Suspect]
     Indication: CROHN^S DISEASE
     Route: 042
     Dates: start: 20110211
  2. VENTOLIN [Concomitant]
     Route: 065
  3. FLOVENT [Concomitant]
     Route: 065
  4. PREDNISONE [Concomitant]
     Route: 048
  5. AZITHROMYCIN [Concomitant]
     Route: 048

REACTIONS (2)
  - Pneumonia [Unknown]
  - Asthma [Unknown]
